FAERS Safety Report 5629903-7 (Version None)
Quarter: 2008Q1

REPORT INFORMATION
  Report Type: 
  Country: None (occurrence: None)
  Receive Date: 20080218
  Receipt Date: 20080208
  Transmission Date: 20080703
  Serious: Yes (Hospitalization, Other)
  Sender: FDA-Public Use
  Company Number: FR-ELI_LILLY_AND_COMPANY-FR200802001917

PATIENT
  Age: 65 Year
  Sex: Female

DRUGS (12)
  1. FORTEO [Suspect]
     Indication: OSTEOPOROSIS
     Dosage: 20 UG, DAILY (1/D)
     Route: 058
     Dates: start: 20070929
  2. SECTRAL [Concomitant]
     Dosage: 0.25 D/F, 2/D
  3. NITRODERM [Concomitant]
     Dosage: 1 D/F, 2/D
     Route: 062
  4. HYDREA [Concomitant]
     Dosage: 2 D/F, DAILY (1/D)
     Route: 048
     Dates: end: 20080108
  5. HYDREA [Concomitant]
     Dosage: 2 D/F, DAILY (1/D)
     Route: 048
     Dates: start: 20080208
  6. HYDROCORTISONE [Concomitant]
     Dosage: 10 MG, DAILY (1/D)
  7. LASILIX [Concomitant]
     Dosage: 40 MG, 2/D
  8. NEORECORMON [Concomitant]
     Dosage: 30000 IU, WEEKLY (1/W)
  9. VASTAREL [Concomitant]
     Dosage: 1 D/F, 2/D
  10. OMEPRAZOLE [Concomitant]
     Dosage: 1 D/F, EACH EVENING
  11. ZYLORIC [Concomitant]
     Dosage: 1 D/F, EACH EVENING
  12. ACETAMINOPHEN [Concomitant]
     Dosage: UNK, AS NEEDED

REACTIONS (3)
  - ANAEMIA [None]
  - CHEST PAIN [None]
  - WHITE BLOOD CELL COUNT DECREASED [None]
